FAERS Safety Report 4804707-3 (Version None)
Quarter: 2005Q4

REPORT INFORMATION
  Report Type: 
  Country: None (occurrence: None)
  Receive Date: 20051017
  Receipt Date: 20051003
  Transmission Date: 20060501
  Serious: Yes (Other)
  Sender: FDA-Public Use
  Company Number: 2005137552

PATIENT
  Sex: Male

DRUGS (2)
  1. VIAGRA [Suspect]
     Indication: ERECTILE DYSFUNCTION
     Dosage: 50 MG (50 MG, 1 IN 1 AS MECESSARY), ORAL
     Route: 048
     Dates: start: 19980101
  2. BRIMONIDINE TARTRATE [Concomitant]

REACTIONS (6)
  - CATARACT [None]
  - EYE IRRITATION [None]
  - GLAUCOMA [None]
  - HEADACHE [None]
  - INTRAOCULAR PRESSURE INCREASED [None]
  - OSTEOARTHRITIS [None]
